FAERS Safety Report 12183179 (Version 1)
Quarter: 2016Q1

REPORT INFORMATION
  Report Type: Spontaneous
  Country: US (occurrence: None)
  Receive Date: 20160315
  Receipt Date: 20160315
  Transmission Date: 20160526
  Serious: No
  Sender: FDA-Public Use
  Company Number: None

PATIENT
  Sex: Female

DRUGS (3)
  1. ENBREL [Suspect]
     Active Substance: ETANERCEPT
     Indication: RHEUMATOID ARTHRITIS
     Dates: start: 20120522
  2. KEFLEX [Concomitant]
     Active Substance: CEPHALEXIN
  3. LIMBREL [Concomitant]
     Active Substance: FLAVOCOXID

REACTIONS (2)
  - Infection [None]
  - Drug dose omission [None]

NARRATIVE: CASE EVENT DATE: 2016
